FAERS Safety Report 8122102-9 (Version None)
Quarter: 2012Q1

REPORT INFORMATION
  Report Type: 
  Country: None (occurrence: None)
  Receive Date: 20120206
  Receipt Date: 20120123
  Transmission Date: 20120608
  Serious: Yes (Hospitalization, Other)
  Sender: FDA-Public Use
  Company Number: 2012MA001015

PATIENT
  Sex: Male
  Weight: 74 kg

DRUGS (13)
  1. HYDROCHLOROTHIAZIDE [Concomitant]
  2. PLAVIX [Concomitant]
  3. LIPITOR [Concomitant]
  4. SOTALOL HCL [Concomitant]
  5. FLOMAX [Concomitant]
  6. NIASPAN [Concomitant]
  7. DIGOXIN [Suspect]
     Indication: PRODUCT USED FOR UNKNOWN INDICATION
     Dosage: 250 MG;QD;PO
     Route: 048
     Dates: start: 20070910, end: 20080921
  8. DILTIAZEM HCL [Concomitant]
  9. LOVASTATIN [Concomitant]
  10. TETRAZEPAM [Concomitant]
  11. COUMADIN [Concomitant]
  12. ASPIRIN [Concomitant]
  13. LISINOPRIL [Concomitant]

REACTIONS (31)
  - FATIGUE [None]
  - BLOOD PRESSURE INCREASED [None]
  - CAROTID ARTERIOSCLEROSIS [None]
  - ATELECTASIS [None]
  - CERVICAL SPINE FLATTENING [None]
  - SINUS BRADYCARDIA [None]
  - ISCHAEMIC CEREBRAL INFARCTION [None]
  - CENTRAL NERVOUS SYSTEM LESION [None]
  - CAROTID ARTERY STENOSIS [None]
  - CEREBRAL HYPOPERFUSION [None]
  - HYPOKALAEMIA [None]
  - VERTEBRAL FORAMINAL STENOSIS [None]
  - BLOOD CREATINE INCREASED [None]
  - DYSARTHRIA [None]
  - AORTIC DILATATION [None]
  - TRICUSPID VALVE INCOMPETENCE [None]
  - SINUS DISORDER [None]
  - AORTIC DISORDER [None]
  - DYSPNOEA [None]
  - ATRIAL FIBRILLATION [None]
  - RESPIRATORY RATE INCREASED [None]
  - CARDIOMEGALY [None]
  - PULMONARY VALVE INCOMPETENCE [None]
  - MASTOID DISORDER [None]
  - SINUS POLYP [None]
  - FACIAL PARESIS [None]
  - CEREBRAL ARTERY OCCLUSION [None]
  - SPINAL OSTEOARTHRITIS [None]
  - HYPERLIPIDAEMIA [None]
  - HAEMOGLOBIN DECREASED [None]
  - PARANASAL CYST [None]
